FAERS Safety Report 6237791-3 (Version None)
Quarter: 2009Q2

REPORT INFORMATION
  Report Type: 
  Country: None (occurrence: None)
  Receive Date: 20090617
  Receipt Date: 20090528
  Transmission Date: 20091009
  Serious: Yes (Hospitalization)
  Sender: FDA-Public Use
  Company Number: 2009EU002149

PATIENT
  Age: 31 Year
  Sex: Male

DRUGS (7)
  1. TACROLIMUS [Suspect]
     Indication: LUNG TRANSPLANT
  2. MYCOPHENOLATE MOFETIL [Suspect]
     Indication: LUNG TRANSPLANT
  3. BASILIXIMAB(BASILIXIMAB) [Suspect]
     Indication: LUNG TRANSPLANT
     Dosage: 20 MG, IV NOS
     Route: 042
  4. CYCLOSPORINE [Suspect]
     Indication: LUNG TRANSPLANT
     Dosage: 50 MG, UID/QD,
  5. PREDNISONE TAB [Suspect]
     Indication: LUNG TRANSPLANT
     Dosage: 25 MG, BID,; 12.5 MG, UID/QD,
  6. AZATHIOPRINE [Concomitant]
  7. METHYLPREDNISOLONE [Concomitant]

REACTIONS (21)
  - ANAEMIA [None]
  - APOPTOSIS [None]
  - ARTHRALGIA [None]
  - ASPERGILLOSIS [None]
  - DIARRHOEA [None]
  - DRUG RESISTANCE [None]
  - EPSTEIN-BARR VIRUS ASSOCIATED LYMPHOPROLIFERATIVE DISORDER [None]
  - FAECES DISCOLOURED [None]
  - GRAFT VERSUS HOST DISEASE [None]
  - HEPATIC NEOPLASM [None]
  - ILEUS PARALYTIC [None]
  - INTESTINAL PERFORATION [None]
  - LEUKOPENIA [None]
  - LYMPHADENOPATHY [None]
  - MYALGIA [None]
  - NO THERAPEUTIC RESPONSE [None]
  - PLEURAL EFFUSION [None]
  - PROTHROMBIN TIME PROLONGED [None]
  - PSEUDOMONAS INFECTION [None]
  - RESPIRATORY FAILURE [None]
  - SPUTUM CULTURE POSITIVE [None]
